FAERS Safety Report 24573240 (Version 1)
Quarter: 2024Q4

REPORT INFORMATION
  Report Type: Spontaneous
  Country: FR (occurrence: FR)
  Receive Date: 20241101
  Receipt Date: 20241101
  Transmission Date: 20250114
  Serious: Yes (Hospitalization)
  Sender: TEVA
  Company Number: None

PATIENT
  Age: 27 Year
  Sex: Male
  Weight: 80 kg

DRUGS (5)
  1. DIAZEPAM [Suspect]
     Active Substance: DIAZEPAM
     Indication: Poisoning deliberate
     Dosage: TIME INTERVAL: TOTAL: NOT SPECIFIED, DIAZEPAM TEVA
     Route: 048
     Dates: start: 20241003, end: 20241003
  2. QUETIAPINE [Suspect]
     Active Substance: QUETIAPINE
     Indication: Poisoning deliberate
     Dosage: TIME INTERVAL: TOTAL: QUETIAPINE VIATRIS LP
     Route: 048
     Dates: start: 20241003, end: 20241003
  3. BRINTELLIX [Concomitant]
     Active Substance: VORTIOXETINE HYDROBROMIDE
     Indication: Product used for unknown indication
     Route: 065
  4. CYAMEMAZINE [Suspect]
     Active Substance: CYAMEMAZINE
     Indication: Poisoning deliberate
     Dosage: TIME INTERVAL: TOTAL: SCORED FILM-COATED TABLET
     Route: 048
     Dates: start: 20241003, end: 20241003
  5. ZOPICLONE [Suspect]
     Active Substance: ZOPICLONE
     Indication: Poisoning deliberate
     Dosage: TIME INTERVAL: TOTAL: ZOPICLONE VIATRIS, SCORED FILM-COATED TABLET
     Route: 048
     Dates: start: 20241003, end: 20241003

REACTIONS (2)
  - Electrocardiogram QT prolonged [Recovered/Resolved]
  - Altered state of consciousness [Recovered/Resolved]

NARRATIVE: CASE EVENT DATE: 20241003
